FAERS Safety Report 15994833 (Version 2)
Quarter: 2020Q3

REPORT INFORMATION
  Report Type: Spontaneous
  Country: CZ (occurrence: CZ)
  Receive Date: 20190222
  Receipt Date: 20200905
  Transmission Date: 20201102
  Serious: Yes (Life-Threatening)
  Sender: FDA-Public Use
  Company Number: CZ-ACCORD-108382

PATIENT
  Age: 73 Year
  Sex: Male
  Weight: 56 kg

DRUGS (4)
  1. KYTRIL [Concomitant]
     Active Substance: GRANISETRON HYDROCHLORIDE
     Indication: PROPHYLAXIS OF NAUSEA AND VOMITING
     Route: 042
     Dates: start: 20180322, end: 20180613
  2. DEXAMED [Concomitant]
     Indication: PREMEDICATION
     Dosage: STRENGTH: 8 MG
     Route: 042
     Dates: start: 20180322, end: 20180613
  3. OXALIPLATIN ACCORD [Suspect]
     Active Substance: OXALIPLATIN
     Indication: OESOPHAGEAL CARCINOMA
     Route: 042
     Dates: start: 20180322, end: 20180613
  4. DOCETAXEL ACCORD [Concomitant]
     Active Substance: DOCETAXEL
     Indication: CHEMOTHERAPY
     Route: 051
     Dates: start: 20180322, end: 20180613

REACTIONS (5)
  - Hypersensitivity [Recovered/Resolved]
  - Off label use [Unknown]
  - Retching [Recovered/Resolved]
  - Vertigo [Recovered/Resolved]
  - Rash pruritic [Recovered/Resolved]

NARRATIVE: CASE EVENT DATE: 20180613
